FAERS Safety Report 20130705 (Version 1)
Quarter: 2021Q4

REPORT INFORMATION
  Report Type: Spontaneous
  Country: GB (occurrence: GB)
  Receive Date: 20211130
  Receipt Date: 20211130
  Transmission Date: 20220303
  Serious: Yes (Other)
  Sender: FDA-Public Use
  Company Number: None

PATIENT

DRUGS (1)
  1. ACETAMINOPHEN [Suspect]
     Active Substance: ACETAMINOPHEN
     Indication: Ear pain
     Route: 048
     Dates: end: 20211012

REACTIONS (2)
  - Lip swelling [Recovering/Resolving]
  - Swelling face [Recovering/Resolving]
